FAERS Safety Report 4924115-4 (Version None)
Quarter: 2006Q1

REPORT INFORMATION
  Report Type: 
  Country: None (occurrence: None)
  Receive Date: 20060227
  Receipt Date: 20051109
  Transmission Date: 20060701
  Serious: No
  Sender: FDA-Public Use
  Company Number: US-GLAXOSMITHKLINE-A0582564A

PATIENT
  Age: 48 Year
  Sex: Female

DRUGS (3)
  1. WELLBUTRIN XL [Suspect]
     Indication: DEPRESSION
     Dosage: 150MG PER DAY
     Route: 048
     Dates: start: 20051026
  2. ROBITUSSIN AC [Suspect]
     Indication: DRUG USE FOR UNKNOWN INDICATION
     Dosage: 2TSP THREE TIMES PER DAY
     Route: 048
     Dates: start: 20051109, end: 20051113
  3. ZITHROMAX [Suspect]
     Dates: start: 20051109, end: 20051112

REACTIONS (1)
  - URTICARIA [None]
